FAERS Safety Report 25710156 (Version 1)
Quarter: 2025Q3

REPORT INFORMATION
  Report Type: Spontaneous
  Country: CA (occurrence: CA)
  Receive Date: 20250821
  Receipt Date: 20250821
  Transmission Date: 20251021
  Serious: Yes (Life-Threatening, Hospitalization, Other)
  Sender: ASSERTIO THERAPEUTICS
  Company Number: CA-ASSERTIO THERAPEUTICS, INC.-CA-2025AST000361

PATIENT

DRUGS (47)
  1. DICLOFENAC POTASSIUM [Suspect]
     Active Substance: DICLOFENAC POTASSIUM
     Indication: Neuralgia
     Route: 065
  2. DICLOFENAC POTASSIUM [Suspect]
     Active Substance: DICLOFENAC POTASSIUM
     Indication: Guillain-Barre syndrome
  3. DICLOFENAC POTASSIUM [Suspect]
     Active Substance: DICLOFENAC POTASSIUM
     Indication: Pain
  4. ACETAMINOPHEN [Suspect]
     Active Substance: ACETAMINOPHEN
     Indication: Neuralgia
     Dosage: 2600 MILLIGRAM, 1 EVERY 1 DAYS
     Route: 065
  5. ACETAMINOPHEN [Suspect]
     Active Substance: ACETAMINOPHEN
     Indication: Pain
     Route: 065
  6. ACETAMINOPHEN [Suspect]
     Active Substance: ACETAMINOPHEN
     Indication: Guillain-Barre syndrome
  7. FENTANYL [Suspect]
     Active Substance: FENTANYL
     Indication: Pain
     Route: 065
  8. FENTANYL [Suspect]
     Active Substance: FENTANYL
     Indication: Guillain-Barre syndrome
     Route: 065
  9. FENTANYL [Suspect]
     Active Substance: FENTANYL
     Indication: Neuralgia
  10. GABAPENTIN [Suspect]
     Active Substance: GABAPENTIN
     Indication: Guillain-Barre syndrome
     Route: 048
  11. GABAPENTIN [Suspect]
     Active Substance: GABAPENTIN
     Indication: Product used for unknown indication
     Route: 048
  12. GABAPENTIN [Suspect]
     Active Substance: GABAPENTIN
     Indication: Acute respiratory failure
     Route: 048
  13. GABAPENTIN [Suspect]
     Active Substance: GABAPENTIN
     Indication: Neuralgia
     Route: 065
  14. GABAPENTIN [Suspect]
     Active Substance: GABAPENTIN
     Route: 065
  15. GABAPENTIN [Suspect]
     Active Substance: GABAPENTIN
     Route: 065
  16. GABAPENTIN [Suspect]
     Active Substance: GABAPENTIN
     Route: 048
  17. HYDROMORPHONE [Suspect]
     Active Substance: HYDROMORPHONE
     Indication: Neuralgia
     Route: 042
  18. HYDROMORPHONE [Suspect]
     Active Substance: HYDROMORPHONE
     Indication: Guillain-Barre syndrome
     Route: 065
  19. HYDROMORPHONE [Suspect]
     Active Substance: HYDROMORPHONE
     Indication: Product used for unknown indication
     Route: 065
  20. HYDROMORPHONE [Suspect]
     Active Substance: HYDROMORPHONE
     Indication: Neuralgia
  21. IBUPROFEN [Suspect]
     Active Substance: IBUPROFEN
     Indication: Neuralgia
     Route: 065
  22. IBUPROFEN [Suspect]
     Active Substance: IBUPROFEN
     Indication: Acute respiratory failure
  23. IBUPROFEN [Suspect]
     Active Substance: IBUPROFEN
     Indication: Guillain-Barre syndrome
  24. KETAMINE [Suspect]
     Active Substance: KETAMINE
     Indication: Guillain-Barre syndrome
     Route: 042
  25. KETAMINE [Suspect]
     Active Substance: KETAMINE
     Indication: Neuralgia
     Route: 065
  26. NABILONE [Suspect]
     Active Substance: NABILONE
     Indication: Neuralgia
     Route: 042
  27. NABILONE [Suspect]
     Active Substance: NABILONE
     Indication: Pain
     Route: 065
  28. NABILONE [Suspect]
     Active Substance: NABILONE
     Indication: Guillain-Barre syndrome
     Route: 065
  29. VENLAFAXINE HYDROCHLORIDE [Suspect]
     Active Substance: VENLAFAXINE HYDROCHLORIDE
     Indication: Guillain-Barre syndrome
     Route: 065
  30. VENLAFAXINE HYDROCHLORIDE [Suspect]
     Active Substance: VENLAFAXINE HYDROCHLORIDE
     Indication: Neuralgia
  31. PHENYTOIN [Suspect]
     Active Substance: PHENYTOIN
     Indication: Neuralgia
     Route: 065
  32. ZOPICLONE [Suspect]
     Active Substance: ZOPICLONE
     Indication: Guillain-Barre syndrome
     Route: 065
  33. ZOPICLONE [Suspect]
     Active Substance: ZOPICLONE
     Indication: Neuralgia
  34. DILAUDID [Suspect]
     Active Substance: HYDROMORPHONE HYDROCHLORIDE
     Indication: Pain
     Route: 065
  35. DILAUDID [Suspect]
     Active Substance: HYDROMORPHONE HYDROCHLORIDE
     Indication: Guillain-Barre syndrome
     Route: 065
  36. DILAUDID [Suspect]
     Active Substance: HYDROMORPHONE HYDROCHLORIDE
     Indication: Neuralgia
  37. OLANZAPINE [Suspect]
     Active Substance: OLANZAPINE
     Indication: Neuralgia
     Route: 065
  38. OLANZAPINE [Suspect]
     Active Substance: OLANZAPINE
     Indication: Guillain-Barre syndrome
     Route: 065
  39. VENLAFAXINE HYDROCHLORIDE [Suspect]
     Active Substance: VENLAFAXINE HYDROCHLORIDE
     Indication: Neuralgia
     Route: 065
  40. HUMAN IMMUNOGLOBULIN G [Suspect]
     Active Substance: HUMAN IMMUNOGLOBULIN G
     Indication: Guillain-Barre syndrome
     Route: 042
  41. DICLOFENAC [Suspect]
     Active Substance: DICLOFENAC
     Indication: Neuralgia
     Route: 065
  42. XYLOCAINE [Suspect]
     Active Substance: LIDOCAINE HYDROCHLORIDE
     Indication: Neuralgia
     Route: 042
  43. XYLOCAINE [Suspect]
     Active Substance: LIDOCAINE HYDROCHLORIDE
     Indication: Guillain-Barre syndrome
  44. XYLOCAINE [Suspect]
     Active Substance: LIDOCAINE HYDROCHLORIDE
     Indication: Pain
  45. NORTRIPTYLINE [Concomitant]
     Active Substance: NORTRIPTYLINE
     Indication: Neuralgia
     Route: 065
  46. BUPIVACAINE [Concomitant]
     Active Substance: BUPIVACAINE
     Indication: Neuralgia
     Route: 065
  47. MORPHINE SULFATE [Concomitant]
     Active Substance: MORPHINE SULFATE
     Indication: Neuralgia
     Route: 065

REACTIONS (3)
  - Inspiratory capacity decreased [Unknown]
  - Off label use [Unknown]
  - Drug ineffective [Unknown]
